FAERS Safety Report 9434991 (Version 4)
Quarter: 2013Q4

REPORT INFORMATION
  Report Type: Report from Study
  Country: US (occurrence: US)
  Receive Date: 20130801
  Receipt Date: 20131025
  Transmission Date: 20140711
  Serious: Yes (Other)
  Sender: FDA-Public Use
  Company Number: PHEH2013US015372

PATIENT
  Age: 48 Year
  Sex: Female
  Weight: 88.44 kg

DRUGS (15)
  1. GILENYA [Suspect]
     Indication: MULTIPLE SCLEROSIS
     Dosage: 0.5 MG, QD
     Route: 048
     Dates: start: 20130717
  2. MICARDIS [Concomitant]
     Dosage: 20 MG, UNK
  3. ATENOLOL [Concomitant]
     Dosage: 25 MG, UNK
  4. NEXIUM [Concomitant]
     Dosage: 20 MG, UNK
  5. GABAPENTIN [Concomitant]
     Dosage: 300 MG, UNK
  6. CYMBALTA [Concomitant]
     Dosage: 20 MG, UNK
  7. NORCO [Concomitant]
  8. BACLOFEN [Concomitant]
     Dosage: 10 MG, UNK
  9. VALACYCLOVIR HCL [Concomitant]
     Dosage: 500 MG, UNK
  10. VITAMIN B12 [Concomitant]
     Dosage: 1000 UG, UNK
  11. VITAMIN D3 [Concomitant]
     Dosage: 400 U, UNK
  12. FISH OIL [Concomitant]
  13. FLONASE [Concomitant]
     Dosage: 0.05 %, UNK
  14. MULTIVITAMIN [Concomitant]
  15. BETA BLOCKING AGENTS [Concomitant]

REACTIONS (11)
  - Chest pain [Recovering/Resolving]
  - Heart rate decreased [Recovered/Resolved]
  - Fatigue [Recovered/Resolved]
  - Dyspnoea [Unknown]
  - Lethargy [Unknown]
  - Nausea [Unknown]
  - Blood pressure decreased [Recovered/Resolved]
  - Full blood count decreased [Recovering/Resolving]
  - Depression [Unknown]
  - White blood cell count decreased [Recovered/Resolved]
  - Asthenia [Recovered/Resolved]
